FAERS Safety Report 25029618 (Version 1)
Quarter: 2025Q1

REPORT INFORMATION
  Report Type: Spontaneous
  Country: KR (occurrence: KR)
  Receive Date: 20250303
  Receipt Date: 20250303
  Transmission Date: 20250409
  Serious: Yes (Other)
  Sender: ASTELLAS
  Company Number: KR-GILEAD-2025-0705380

PATIENT
  Sex: Male

DRUGS (1)
  1. AMPHOTERICIN B [Suspect]
     Active Substance: AMPHOTERICIN B
     Indication: Pneumonia fungal
     Dosage: 150 MG, QD
     Route: 065
     Dates: start: 20210731, end: 20210731

REACTIONS (4)
  - Oxygen saturation decreased [Recovered/Resolved]
  - Muscle rigidity [Recovered/Resolved]
  - Syncope [Recovered/Resolved]
  - Drug reaction with eosinophilia and systemic symptoms [Recovered/Resolved]

NARRATIVE: CASE EVENT DATE: 20210731
